FAERS Safety Report 19294375 (Version 1)
Quarter: 2021Q2

REPORT INFORMATION
  Report Type: Spontaneous
  Country: US (occurrence: US)
  Receive Date: 20210524
  Receipt Date: 20210524
  Transmission Date: 20210717
  Serious: Yes (Hospitalization)
  Sender: FDA-Public Use
  Company Number: None

PATIENT
  Age: 70 Year
  Sex: Male
  Weight: 261 kg

DRUGS (2)
  1. ENOXAPARIN (GENERIC) (ENOXAPARIN 150MG/ML INJ,SYRINGE,1ML(GENERIC) [Suspect]
     Active Substance: ENOXAPARIN SODIUM
     Indication: PULMONARY EMBOLISM
     Route: 058
     Dates: start: 20210323, end: 20210328
  2. ENOXAPARIN (GENERIC) (ENOXAPARIN 150MG/ML INJ,SYRINGE,1ML(GENERIC)) [Suspect]
     Active Substance: ENOXAPARIN
     Indication: DEEP VEIN THROMBOSIS

REACTIONS (2)
  - Peripheral artery thrombosis [None]
  - Thrombocytopenia [None]

NARRATIVE: CASE EVENT DATE: 20210329
